FAERS Safety Report 10191862 (Version 1)
Quarter: 2014Q2

REPORT INFORMATION
  Report Type: Spontaneous
  Country: CA (occurrence: CA)
  Receive Date: 20140523
  Receipt Date: 20140523
  Transmission Date: 20141212
  Serious: Yes (Hospitalization)
  Sender: FDA-Public Use
  Company Number: CA-GLAXOSMITHKLINE-A1062420A

PATIENT
  Age: 70 Year
  Sex: Female
  Weight: 74.8 kg

DRUGS (2)
  1. MALARONE [Suspect]
     Indication: MALARIA PROPHYLAXIS
     Route: 065
     Dates: start: 20131231, end: 20140117
  2. YELLOW FEVER [Concomitant]
     Indication: PROPHYLAXIS
     Dosage: .5CC UNKNOWN
     Route: 058
     Dates: start: 20131029

REACTIONS (12)
  - Mouth ulceration [Unknown]
  - Contusion [Unknown]
  - Epistaxis [Unknown]
  - Gingival bleeding [Unknown]
  - Skin haemorrhage [Unknown]
  - Immune thrombocytopenic purpura [Recovered/Resolved]
  - Pancytopenia [Recovered/Resolved]
  - Platelet count decreased [Unknown]
  - Haemorrhage [Unknown]
  - Anaemia [Unknown]
  - Myelodysplastic syndrome [Unknown]
  - Thrombocytopenia [Unknown]
